FAERS Safety Report 15201631 (Version 1)
Quarter: 2018Q3

REPORT INFORMATION
  Report Type: Spontaneous
  Country: FR (occurrence: FR)
  Receive Date: 20180726
  Receipt Date: 20180726
  Transmission Date: 20181010
  Serious: Yes (Other)
  Sender: FDA-Public Use
  Company Number: FR-BAYER-2018-136304

PATIENT
  Age: 60 Year
  Sex: Male

DRUGS (5)
  1. FLECAINE [Suspect]
     Active Substance: FLECAINIDE
     Indication: SUPRAVENTRICULAR TACHYCARDIA
     Dosage: 200 MG, QD
     Route: 048
  2. CIFLOX [Suspect]
     Active Substance: CIPROFLOXACIN
     Indication: SEPSIS
     Dosage: UNK
     Route: 048
  3. VORICONAZOLE. [Suspect]
     Active Substance: VORICONAZOLE
     Indication: BRONCHOPULMONARY ASPERGILLOSIS
     Dosage: 600 MG, QD
     Route: 041
     Dates: start: 20180609, end: 20180612
  4. SEROPLEX [Suspect]
     Active Substance: ESCITALOPRAM OXALATE
     Indication: DEPRESSIVE SYMPTOM
     Dosage: 20 MG, QD
     Route: 048
  5. ROVALCYTE [Concomitant]
     Active Substance: VALGANCICLOVIR HYDROCHLORIDE
     Indication: CYTOMEGALOVIRUS COLITIS
     Dosage: 450 MG, QD
     Route: 048
     Dates: start: 20180607

REACTIONS (1)
  - Bradycardia [Recovered/Resolved]

NARRATIVE: CASE EVENT DATE: 20180612
